FAERS Safety Report 6240846-0 (Version None)
Quarter: 2009Q2

REPORT INFORMATION
  Report Type: 
  Country: None (occurrence: None)
  Receive Date: 20090623
  Receipt Date: 20090615
  Transmission Date: 20091009
  Serious: Yes (Other)
  Sender: FDA-Public Use
  Company Number: US-PFIZER INC-2009228098

PATIENT

DRUGS (1)
  1. SUNITINIB MALATE [Suspect]

REACTIONS (3)
  - PANCREATITIS [None]
  - PROSTATIC SPECIFIC ANTIGEN DECREASED [None]
  - RENAL FAILURE [None]
